FAERS Safety Report 9547463 (Version 1)
Quarter: 2013Q3

REPORT INFORMATION
  Report Type: Spontaneous
  Country: US (occurrence: US)
  Receive Date: 20130924
  Receipt Date: 20130924
  Transmission Date: 20140515
  Serious: No
  Sender: FDA-Public Use
  Company Number: US-BAYER-2013-114984

PATIENT
  Sex: Female
  Weight: 54.42 kg

DRUGS (10)
  1. BETASERON [Suspect]
     Indication: MULTIPLE SCLEROSIS
     Dosage: UNK UNK, UNK
     Route: 058
  2. BIOTIN [Concomitant]
  3. CALCIUM +VIT D [Concomitant]
  4. CYCLOBENZAPRINE [Concomitant]
  5. FOLIC ACID [Concomitant]
  6. LIPITOR [Concomitant]
  7. PILOCARPIN [Concomitant]
  8. TOPAMAX [Concomitant]
  9. VITAMIN B12 [CYANOCOBALAMIN] [Concomitant]
  10. VITAMIN D NOS [Concomitant]

REACTIONS (1)
  - Hepatic enzyme increased [Recovered/Resolved]
